FAERS Safety Report 4660324-X (Version None)
Quarter: 2005Q2

REPORT INFORMATION
  Report Type: 
  Country: None (occurrence: None)
  Receive Date: 20050505
  Receipt Date: 20050223
  Transmission Date: 20051028
  Serious: No
  Sender: FDA-Public Use
  Company Number: 2005USFACT00348

PATIENT
  Age: 74 Year
  Sex: Male
  Weight: 95.2 kg

DRUGS (6)
  1. FACTIVE [Suspect]
     Indication: RESPIRATORY TRACT INFECTION BACTERIAL
     Dosage: 320.00 MG, QD, ORAL
     Route: 048
     Dates: start: 20050215, end: 20050216
  2. NADOLOL [Concomitant]
  3. NORVASC [Concomitant]
  4. AVAPRO [Concomitant]
  5. GLYBURIDE [Concomitant]
  6. LIPITOR [Concomitant]

REACTIONS (4)
  - ABDOMINAL PAIN UPPER [None]
  - ANXIETY [None]
  - HALLUCINATION [None]
  - NAUSEA [None]
